FAERS Safety Report 8802996 (Version 1)
Quarter: 2012Q4

REPORT INFORMATION
  Report Type: 
  Country: US (occurrence: US)
  Receive Date: 20120924
  Receipt Date: 20120924
  Transmission Date: 20130627
  Serious: Yes (Other)
  Sender: FDA-Public Use
  Company Number: PHEH2012US017845

PATIENT
  Sex: Female

DRUGS (7)
  1. DIOVAN [Suspect]
     Dosage: 160 mg, BID
  2. METOPROLOL SUCCER [Concomitant]
     Dosage: 100 mg, BID
  3. CARDIZEM CD [Concomitant]
     Dosage: 240 mg, BID
  4. HYDROCHLOROTHIAZIDE [Concomitant]
     Dosage: 12.5 mg, QD
  5. WARFARIN SODIUM [Concomitant]
     Dosage: 3 mg, QD
  6. LEVOTHYROXINE [Concomitant]
     Dosage: 50 mg, QD
  7. BABY ASPIRIN [Concomitant]

REACTIONS (1)
  - Breast cancer [Recovering/Resolving]
